FAERS Safety Report 24258618 (Version 1)
Quarter: 2024Q3

REPORT INFORMATION
  Report Type: Spontaneous
  Country: US (occurrence: US)
  Receive Date: 20240828
  Receipt Date: 20240828
  Transmission Date: 20241016
  Serious: Yes (Other)
  Sender: JOHNSON AND JOHNSON
  Company Number: US-JNJFOC-20240852503

PATIENT
  Age: 51 Year
  Sex: Female

DRUGS (1)
  1. SIMPONI [Suspect]
     Active Substance: GOLIMUMAB
     Indication: Psoriatic arthropathy
     Route: 058
     Dates: start: 202108

REACTIONS (2)
  - Malignant atrophic papulosis [Recovering/Resolving]
  - Alopecia areata [Unknown]

NARRATIVE: CASE EVENT DATE: 20220901
